FAERS Safety Report 4287781-5 (Version None)
Quarter: 2004Q1

REPORT INFORMATION
  Report Type: 
  Country: None (occurrence: None)
  Receive Date: 20040209
  Receipt Date: 20030923
  Transmission Date: 20041129
  Serious: Yes (Other)
  Sender: FDA-Public Use
  Company Number: US-GLAXOSMITHKLINE-A0427071A

PATIENT
  Age: 31 Year
  Sex: Male

DRUGS (4)
  1. PAXIL [Suspect]
     Dosage: 25MG PER DAY
     Route: 048
     Dates: start: 20030923
  2. KLONOPIN [Concomitant]
  3. LORTAB [Concomitant]
  4. PAREGORIC [Concomitant]

REACTIONS (4)
  - DIARRHOEA [None]
  - MYDRIASIS [None]
  - SEROTONIN SYNDROME [None]
  - VOMITING [None]
